FAERS Safety Report 8238916-0 (Version None)
Quarter: 2012Q1

REPORT INFORMATION
  Report Type: 
  Country: None (occurrence: None)
  Receive Date: 20120327
  Receipt Date: 20120323
  Transmission Date: 20120608
  Serious: Yes (Hospitalization, Other)
  Sender: FDA-Public Use
  Company Number: US-GILEAD-2012-0050899

PATIENT
  Sex: Female

DRUGS (2)
  1. VENTAVIS [Concomitant]
  2. LETAIRIS [Suspect]
     Indication: PULMONARY HYPERTENSION
     Dosage: 5 MG, UNK
     Route: 048
     Dates: start: 20100401

REACTIONS (5)
  - CARDIAC ENZYMES INCREASED [None]
  - FLUID RETENTION [None]
  - ABDOMINAL PAIN UPPER [None]
  - ATRIAL FIBRILLATION [None]
  - ABDOMINAL PAIN [None]
